FAERS Safety Report 21924824 (Version 2)
Quarter: 2023Q1

REPORT INFORMATION
  Report Type: Spontaneous
  Country: US (occurrence: US)
  Receive Date: 20230130
  Receipt Date: 20230203
  Transmission Date: 20230417
  Serious: No
  Sender: FDA-Public Use
  Company Number: US-SANOFI-01458637

PATIENT
  Age: 79 Year
  Sex: Female

DRUGS (1)
  1. DUPIXENT [Suspect]
     Active Substance: DUPILUMAB
     Indication: Dermatitis atopic
     Dosage: 300 MG, QOW

REACTIONS (7)
  - Paraesthesia [Unknown]
  - Insomnia [Unknown]
  - Rash macular [Unknown]
  - Accidental exposure to product [Unknown]
  - Therapeutic response unexpected [Unknown]
  - Product preparation error [Unknown]
  - Inappropriate schedule of product administration [Unknown]
